FAERS Safety Report 5195490-3 (Version None)
Quarter: 2006Q4

REPORT INFORMATION
  Report Type: 
  Country: None (occurrence: None)
  Receive Date: 20061222
  Receipt Date: 20061222
  Transmission Date: 20070319
  Serious: Yes (Life-Threatening)
  Sender: FDA-Public Use
  Company Number: None

PATIENT
  Age: 52 Year
  Sex: Female
  Weight: 49.9 kg

DRUGS (2)
  1. RIBAVIRIN [Suspect]
     Indication: HEPATITIS C
     Dosage: 600 MG;  400 MG   EVERY AM; EVERY PM  PO
     Route: 048
  2. PEGASYS [Suspect]
     Dosage: 180 MICROGRAMS WEEKLY SQ
     Route: 058

REACTIONS (1)
  - ANAEMIA [None]
